FAERS Safety Report 9756394 (Version 1)
Quarter: 2013Q4

REPORT INFORMATION
  Report Type: Spontaneous
  Country: US (occurrence: US)
  Receive Date: 20131213
  Receipt Date: 20131213
  Transmission Date: 20140711
  Serious: No
  Sender: FDA-Public Use
  Company Number: US-GLAXOSMITHKLINE-A1040032A

PATIENT
  Age: 32 Year
  Sex: Male

DRUGS (1)
  1. NICODERM CQ CLEAR 21MG [Suspect]
     Indication: SMOKING CESSATION THERAPY
     Route: 062
     Dates: start: 20130902, end: 20130903

REACTIONS (12)
  - Dizziness [Recovered/Resolved]
  - Application site warmth [Recovered/Resolved]
  - Application site pruritus [Recovered/Resolved]
  - Euphoric mood [Recovered/Resolved]
  - Feeling jittery [Recovered/Resolved]
  - Disturbance in attention [Recovered/Resolved]
  - Ill-defined disorder [Recovered/Resolved]
  - Application site pain [Recovered/Resolved]
  - Application site swelling [Recovered/Resolved]
  - Application site erythema [Recovered/Resolved]
  - Application site pain [Recovered/Resolved]
  - Feeling abnormal [Recovered/Resolved]
